FAERS Safety Report 4440633-X (Version None)
Quarter: 2004Q3

REPORT INFORMATION
  Report Type: 
  Country: None (occurrence: None)
  Receive Date: 20040901
  Receipt Date: 20040901
  Transmission Date: 20050211
  Serious: Yes (Hospitalization)
  Sender: FDA-Public Use
  Company Number: None

PATIENT
  Sex: Male
  Weight: 68.0396 kg

DRUGS (7)
  1. GEMZAR [Suspect]
     Indication: PANCREATIC CARCINOMA
     Dosage: 850 MG/M2 [PRIOR TO ADMISSION]
  2. ATENOLOL [Concomitant]
  3. PRANDIN [Concomitant]
  4. HYDRALAZINE HCL [Concomitant]
  5. DYAZIDE [Concomitant]
  6. ACIPHEX [Concomitant]
  7. PROCRIT [Concomitant]

REACTIONS (7)
  - ASTHENIA [None]
  - BONE MARROW DEPRESSION [None]
  - DECREASED APPETITE [None]
  - DEHYDRATION [None]
  - NAUSEA [None]
  - PANCYTOPENIA [None]
  - VOMITING [None]
